FAERS Safety Report 19685935 (Version 2)
Quarter: 2021Q3

REPORT INFORMATION
  Report Type: Spontaneous
  Country: FR (occurrence: FR)
  Receive Date: 20210811
  Receipt Date: 20210817
  Transmission Date: 20211014
  Serious: Yes (Other)
  Sender: FDA-Public Use
  Company Number: FR-MYLANLABS-2021M1049085

PATIENT
  Age: 87 Year
  Sex: Female

DRUGS (63)
  1. METHYLPREDNISOLONE. [Suspect]
     Active Substance: METHYLPREDNISOLONE
     Dosage: 40 MILLIGRAM (40 MILLIGRAM AT EACH CHEMOTHERAPY CURE)
     Route: 042
     Dates: start: 20210126
  2. ONDANSETRON [Suspect]
     Active Substance: ONDANSETRON
     Indication: CHEMOTHERAPY
     Dosage: 8 MILLIGRAM (8 MILLIGRAM AT EACH CHEMOTHERAPY CURE)
     Route: 042
     Dates: start: 20200909
  3. ONDANSETRON [Interacting]
     Active Substance: ONDANSETRON
     Dosage: 8 MILLIGRAM (8 MILLIGRAM AT EACH CHEMOTHERAPY CURE)
     Route: 042
     Dates: start: 20201008
  4. ONDANSETRON [Interacting]
     Active Substance: ONDANSETRON
     Dosage: 8 MILLIGRAM (8 MILLIGRAM AT EACH CHEMOTHERAPY CURE)
     Route: 042
     Dates: start: 20201201
  5. SODIUM CHLORIDE. [Suspect]
     Active Substance: SODIUM CHLORIDE
     Indication: CHEMOTHERAPY
     Dosage: 100 MILLILITER (100 MILLILITER AT EACH CHEMOTHERAPY CURE)
     Route: 042
     Dates: start: 20200909
  6. LEVOFOLINATE SODIUM [Suspect]
     Active Substance: LEVOLEUCOVORIN DISODIUM
     Dosage: 170 MILLIGRAM (170 MILLIGRAM AT EACH CHEMOTHERAPY CURE)
     Route: 042
     Dates: start: 20210126
  7. METHYLPREDNISOLONE. [Suspect]
     Active Substance: METHYLPREDNISOLONE
     Indication: CHEMOTHERAPY
     Dosage: 40 MILLIGRAM (40 MILLIGRAM AT EACH CHEMOTHERAPY CURE)
     Route: 042
     Dates: start: 20200909
  8. METHYLPREDNISOLONE. [Suspect]
     Active Substance: METHYLPREDNISOLONE
     Dosage: 40 MILLIGRAM (40 MILLIGRAM AT EACH CHEMOTHERAPY CURE)
     Route: 042
     Dates: start: 20201117
  9. METHYLPREDNISOLONE. [Suspect]
     Active Substance: METHYLPREDNISOLONE
     Dosage: 40 MILLIGRAM (40 MILLIGRAM AT EACH CHEMOTHERAPY CURE)
     Route: 042
     Dates: start: 20201201
  10. METHYLPREDNISOLONE. [Suspect]
     Active Substance: METHYLPREDNISOLONE
     Dosage: 40 MILLIGRAM (40 MILLIGRAM AT EACH CHEMOTHERAPY CURE)
     Route: 042
     Dates: start: 20210112
  11. ONDANSETRON [Interacting]
     Active Substance: ONDANSETRON
     Dosage: 8 MILLIGRAM (8 MILLIGRAM AT EACH CHEMOTHERAPY CURE)
     Route: 042
     Dates: start: 20201015
  12. SODIUM CHLORIDE. [Suspect]
     Active Substance: SODIUM CHLORIDE
     Dosage: 100 MILLILITER (100 MILLILITER AT EACH CHEMOTHERAPY CURE)
     Route: 042
     Dates: start: 20201201
  13. SODIUM CHLORIDE. [Suspect]
     Active Substance: SODIUM CHLORIDE
     Dosage: 100 MILLILITER (100 MILLILITER AT EACH CHEMOTHERAPY CURE)
     Route: 042
     Dates: start: 20201215
  14. SODIUM CHLORIDE. [Suspect]
     Active Substance: SODIUM CHLORIDE
     Dosage: 100 MILLILITER AT EACH CHEMOTHERAPY CURE
     Route: 042
     Dates: start: 20210126
  15. LEVOFOLINATE SODIUM [Suspect]
     Active Substance: LEVOLEUCOVORIN DISODIUM
     Dosage: 170 MILLIGRAM (170 MILLIGRAM AT EACH CHEMOTHERAPY CURE)
     Route: 042
     Dates: start: 20200923
  16. LEVOFOLINATE SODIUM [Suspect]
     Active Substance: LEVOLEUCOVORIN DISODIUM
     Dosage: 170 MILLIGRAM (170 MILLIGRAM AT EACH CHEMOTHERAPY CURE)
     Route: 042
     Dates: start: 20200923
  17. LEVOFOLINATE SODIUM [Suspect]
     Active Substance: LEVOLEUCOVORIN DISODIUM
     Dosage: 170 MILLIGRAM (170 MILLIGRAM AT EACH CHEMOTHERAPY CURE)
     Route: 042
     Dates: start: 20201015
  18. 5?FLUOROURACIL                     /00098801/ [Suspect]
     Active Substance: FLUOROURACIL
     Dosage: 350MG AND 2000MG AT EACH CHEMOTHERAPY CURE
     Route: 042
     Dates: start: 20200917
  19. 5?FLUOROURACIL                     /00098801/ [Suspect]
     Active Substance: FLUOROURACIL
     Dosage: 350MG AND 2000MG AT EACH CHEMOTHERAPY CURE
     Route: 042
     Dates: start: 20201008
  20. 5?FLUOROURACIL                     /00098801/ [Suspect]
     Active Substance: FLUOROURACIL
     Dosage: 350MG AND 2000MG AT EACH CHEMOTHERAPY CURE
     Route: 042
     Dates: start: 20201201
  21. PERINDOPRIL SANDOZ [Concomitant]
     Active Substance: PERINDOPRIL
     Indication: CARDIAC DISORDER
     Dosage: 1 DOSAGE FORM, QD (1 DOSAGE FORM, ONCE A DAY)
     Route: 048
  22. METHYLPREDNISOLONE. [Suspect]
     Active Substance: METHYLPREDNISOLONE
     Dosage: 40 MILLIGRAM (40 MILLIGRAM AT EACH CHEMOTHERAPY CURE)
     Route: 042
     Dates: start: 20200917
  23. METHYLPREDNISOLONE. [Suspect]
     Active Substance: METHYLPREDNISOLONE
     Dosage: 40 MILLIGRAM (40 MILLIGRAM AT EACH CHEMOTHERAPY CURE)
     Route: 042
     Dates: start: 20201229
  24. ONDANSETRON [Interacting]
     Active Substance: ONDANSETRON
     Dosage: 8 MILLIGRAM (8 MILLIGRAM AT EACH CHEMOTHERAPY CURE)
     Route: 042
     Dates: start: 20200917
  25. LEVOFOLINATE SODIUM [Suspect]
     Active Substance: LEVOLEUCOVORIN DISODIUM
     Dosage: 170 MILLIGRAM (170 MILLIGRAM AT EACH CHEMOTHERAPY CURE)
     Route: 042
     Dates: start: 20201201
  26. METHYLPREDNISOLONE. [Suspect]
     Active Substance: METHYLPREDNISOLONE
     Dosage: 40 MILLIGRAM (40 MILLIGRAM AT EACH CHEMOTHERAPY CURE)
     Route: 042
     Dates: start: 20201015
  27. METHYLPREDNISOLONE. [Suspect]
     Active Substance: METHYLPREDNISOLONE
     Dosage: 40 MILLIGRAM (40 MILLIGRAM AT EACH CHEMOTHERAPY CURE)
     Route: 042
     Dates: start: 20201215
  28. ONDANSETRON [Interacting]
     Active Substance: ONDANSETRON
     Dosage: 8 MILLIGRAM (8 MILLIGRAM AT EACH CHEMOTHERAPY CURE)
     Route: 042
     Dates: start: 20201117
  29. SODIUM CHLORIDE. [Suspect]
     Active Substance: SODIUM CHLORIDE
     Dosage: 100 MILLILITER (100 MILLILITER AT EACH CHEMOTHERAPY CURE)
     Route: 042
     Dates: start: 20201117
  30. LEVOFOLINATE SODIUM [Suspect]
     Active Substance: LEVOLEUCOVORIN DISODIUM
     Dosage: 170 MILLIGRAM (170 MILLIGRAM AT EACH CHEMOTHERAPY CURE)
     Route: 042
     Dates: start: 20200917
  31. 5?FLUOROURACIL                     /00098801/ [Suspect]
     Active Substance: FLUOROURACIL
     Dosage: 350MG AND 2000MG AT EACH CHEMOTHERAPY CURE
     Route: 042
     Dates: start: 20201015
  32. 5?FLUOROURACIL                     /00098801/ [Suspect]
     Active Substance: FLUOROURACIL
     Dosage: 350MG AND 2000MG AT EACH CHEMOTHERAPY CURE
     Route: 042
     Dates: start: 20201117
  33. 5?FLUOROURACIL                     /00098801/ [Suspect]
     Active Substance: FLUOROURACIL
     Dosage: 350MG AND 2000MG AT EACH CHEMOTHERAPY CURE
     Route: 042
     Dates: start: 20201229
  34. 5?FLUOROURACIL                     /00098801/ [Suspect]
     Active Substance: FLUOROURACIL
     Dosage: 350MG AND 2000MG AT EACH CHEMOTHERAPY CURE
     Route: 042
     Dates: start: 20210126
  35. METHYLPREDNISOLONE. [Suspect]
     Active Substance: METHYLPREDNISOLONE
     Dosage: 40 MILLIGRAM (40 MILLIGRAM AT EACH CHEMOTHERAPY CURE)
     Route: 042
     Dates: start: 20200923
  36. ONDANSETRON [Interacting]
     Active Substance: ONDANSETRON
     Dosage: 8 MILLIGRAM (8 MILLIGRAM AT EACH CHEMOTHERAPY CURE)
     Route: 042
     Dates: start: 20201215
  37. ONDANSETRON [Interacting]
     Active Substance: ONDANSETRON
     Dosage: 8 MILLIGRAM (8 MILLIGRAM AT EACH CHEMOTHERAPY CURE)
     Route: 042
     Dates: start: 20210112
  38. SODIUM CHLORIDE. [Suspect]
     Active Substance: SODIUM CHLORIDE
     Dosage: 100 MILLILITER (100 MILLILITER AT EACH CHEMOTHERAPY CURE)
     Route: 042
     Dates: start: 20201229
  39. LEVOFOLINATE SODIUM [Suspect]
     Active Substance: LEVOLEUCOVORIN DISODIUM
     Dosage: 170 MILLIGRAM (170 MILLIGRAM AT EACH CHEMOTHERAPY CURE)
     Route: 042
     Dates: start: 20201117
  40. LEVOFOLINATE SODIUM [Suspect]
     Active Substance: LEVOLEUCOVORIN DISODIUM
     Dosage: 170 MILLIGRAM (170 MILLIGRAM AT EACH CHEMOTHERAPY CURE)
     Route: 042
     Dates: start: 20201229
  41. 5?FLUOROURACIL                     /00098801/ [Suspect]
     Active Substance: FLUOROURACIL
     Dosage: 350MG AND 2000MG AT EACH CHEMOTHERAPY CURE
     Route: 042
     Dates: start: 20201215
  42. FUROSEMIDE SANDOZ [Concomitant]
     Active Substance: FUROSEMIDE
     Indication: CARDIAC DISORDER
     Dosage: 1 DOSAGE FORM, QD (1 DOSAGE FORM, ONCE A DAY)
     Route: 048
  43. EUROBIOL                           /00014701/ [Concomitant]
     Indication: PRODUCT USED FOR UNKNOWN INDICATION
     Dosage: 6 DOSAGE FORM (6 DOSAGE FORM, DAILY (2 IN THE MORNING, 2 IN THE NOON, 2 IN THE EVENING))
     Route: 065
  44. PANTOPRAZOLE SANDOZ [Concomitant]
     Active Substance: PANTOPRAZOLE SODIUM
     Indication: GASTROINTESTINAL DISORDER
     Dosage: 1 DOSAGE FORM, QD (1 DOSAGE FORM, ONCE A DAY IN THE EVENING)
     Route: 048
  45. ONDANSETRON [Interacting]
     Active Substance: ONDANSETRON
     Dosage: 8 MILLIGRAM (8 MILLIGRAM AT EACH CHEMOTHERAPY CURE)
     Route: 042
     Dates: start: 20201229
  46. LEVOFOLINATE SODIUM [Suspect]
     Active Substance: LEVOLEUCOVORIN DISODIUM
     Indication: CHEMOTHERAPY
     Dosage: 170 MILLIGRAM (170 MILLIGRAM AT EACH CHEMOTHERAPY CURE)
     Route: 042
     Dates: start: 20200909
  47. LEVOFOLINATE SODIUM [Suspect]
     Active Substance: LEVOLEUCOVORIN DISODIUM
     Dosage: 170 MILLIGRAM (170 MILLIGRAM AT EACH CHEMOTHERAPY CURE)
     Route: 042
     Dates: start: 20201008
  48. 5?FLUOROURACIL                     /00098801/ [Suspect]
     Active Substance: FLUOROURACIL
     Dosage: 350MG AND 2000MG AT EACH CHEMOTHERAPY CURE
     Route: 042
     Dates: start: 20200923
  49. ELIQUIS [Concomitant]
     Active Substance: APIXABAN
     Indication: CARDIAC DISORDER
     Dosage: 2 DOSAGE FORM, QD (1 DOSAGE FORM, TWO TIMES A DAY)
     Route: 048
  50. METHYLPREDNISOLONE. [Suspect]
     Active Substance: METHYLPREDNISOLONE
     Dosage: 40 MILLIGRAM (40 MILLIGRAM AT EACH CHEMOTHERAPY CURE)
     Route: 042
     Dates: start: 20201008
  51. ONDANSETRON [Interacting]
     Active Substance: ONDANSETRON
     Dosage: 8 MILLIGRAM (8 MILLIGRAM AT EACH CHEMOTHERAPY CURE)
     Route: 042
     Dates: start: 20210126
  52. SODIUM CHLORIDE. [Suspect]
     Active Substance: SODIUM CHLORIDE
     Dosage: 100 MILLILITER (100 MILLILITER AT EACH CHEMOTHERAPY CURE)
     Route: 042
     Dates: start: 20200917
  53. SODIUM CHLORIDE. [Suspect]
     Active Substance: SODIUM CHLORIDE
     Dosage: 100 MILLILITER (100 MILLILITER (100 MILLILITER AT EACH CHEMOTHERAPY CURE))
     Route: 042
     Dates: start: 20201008
  54. SODIUM CHLORIDE. [Suspect]
     Active Substance: SODIUM CHLORIDE
     Dosage: 100 MILLILITER (100 MILLILITER AT EACH CHEMOTHERAPY CURE)
     Route: 042
     Dates: start: 20201015
  55. 5?FLUOROURACIL                     /00098801/ [Suspect]
     Active Substance: FLUOROURACIL
     Dosage: 350MG AND 2000MG AT EACH CHEMOTHERAPY CURE
     Route: 042
     Dates: start: 20210112
  56. AMIODARONE ARROW [Suspect]
     Active Substance: AMIODARONE
     Indication: ARRHYTHMIA
     Dosage: 200 MILLIGRAM
     Route: 048
     Dates: start: 202011
  57. ONDANSETRON [Interacting]
     Active Substance: ONDANSETRON
     Dosage: 8 MILLIGRAM (8 MILLIGRAM AT EACH CHEMOTHERAPY CURE)
     Route: 042
     Dates: start: 20200923
  58. SODIUM CHLORIDE. [Suspect]
     Active Substance: SODIUM CHLORIDE
     Dosage: 100 MILLILITER (100 MILLILITER AT EACH CHEMOTHERAPY CURE)
     Route: 042
     Dates: start: 20200923
  59. SODIUM CHLORIDE. [Suspect]
     Active Substance: SODIUM CHLORIDE
     Dosage: 100 MILLILITER (100 MILLILITER AT EACH CHEMOTHERAPY CURE)
     Route: 042
     Dates: start: 20210112
  60. LEVOFOLINATE SODIUM [Suspect]
     Active Substance: LEVOLEUCOVORIN DISODIUM
     Dosage: 170 MILLIGRAM (170 MILLIGRAM AT EACH CHEMOTHERAPY CURE)
     Route: 042
     Dates: start: 20201215
  61. LEVOFOLINATE SODIUM [Suspect]
     Active Substance: LEVOLEUCOVORIN DISODIUM
     Dosage: 170 MILLIGRAM (170 MILLIGRAM AT EACH CHEMOTHERAPY CURE)
     Route: 042
     Dates: start: 20210112
  62. 5?FLUOROURACIL                     /00098801/ [Suspect]
     Active Substance: FLUOROURACIL
     Indication: PANCREATIC CARCINOMA
     Dosage: 350MG AND 2000MG AT EACH CHEMOTHERAPY CURE
     Route: 042
     Dates: start: 20200909
  63. ALLOPURINOL TEVA [Concomitant]
     Active Substance: ALLOPURINOL
     Indication: CARDIAC DISORDER
     Dosage: 1 DOSAGE FORM, QD (1 DOSAGE FORM, ONCE A DAY)
     Route: 048

REACTIONS (11)
  - Aphasia [Recovered/Resolved]
  - Dyspnoea [Recovered/Resolved]
  - Crying [Recovered/Resolved]
  - Anxiety [Recovered/Resolved]
  - Feeling abnormal [Recovered/Resolved]
  - Gait inability [Recovered/Resolved]
  - Tremor [Recovered/Resolved]
  - Labelled drug-drug interaction issue [Unknown]
  - Seizure [Recovered/Resolved]
  - Vision blurred [Recovered/Resolved]
  - Fatigue [Not Recovered/Not Resolved]

NARRATIVE: CASE EVENT DATE: 20201117
